FAERS Safety Report 22166143 (Version 1)
Quarter: 2023Q2

REPORT INFORMATION
  Report Type: Report from Study
  Country: US (occurrence: US)
  Receive Date: 20230403
  Receipt Date: 20230403
  Transmission Date: 20230721
  Serious: Yes (Hospitalization)
  Sender: FDA-Public Use
  Company Number: US-OTSUKA-2023_007375

PATIENT
  Age: 34 Year
  Sex: Female

DRUGS (6)
  1. TOLVAPTAN [Suspect]
     Active Substance: TOLVAPTAN
     Indication: Congenital cystic kidney disease
     Dosage: 45 MG, QD (UPON WAKING)
     Route: 048
     Dates: start: 20230312
  2. TOLVAPTAN [Suspect]
     Active Substance: TOLVAPTAN
     Indication: Congenital cystic kidney disease
     Dosage: 15 MG, QD (8 HOURS LATER)
     Route: 048
     Dates: start: 20230312
  3. LACTOSE [Concomitant]
     Active Substance: LACTOSE
     Indication: Product used for unknown indication
     Dosage: POW
     Route: 065
  4. NORETHINDRONE [Concomitant]
     Active Substance: NORETHINDRONE
     Indication: Product used for unknown indication
     Dosage: 0.35 MG
     Route: 065
  5. TUMS [Concomitant]
     Active Substance: CALCIUM CARBONATE
     Indication: Product used for unknown indication
     Dosage: 1000 MG (ULTRA CHW)
     Route: 065
  6. TYLENOL [Concomitant]
     Active Substance: ACETAMINOPHEN
     Indication: Product used for unknown indication
     Dosage: 500 MG
     Route: 065

REACTIONS (6)
  - Hyponatraemia [Recovered/Resolved]
  - Fluid intake restriction [Recovered/Resolved]
  - Anal haemorrhage [Recovered/Resolved]
  - Polydipsia [Recovered/Resolved]
  - Decreased appetite [Recovered/Resolved]
  - Therapy interrupted [Unknown]

NARRATIVE: CASE EVENT DATE: 20230319
